FAERS Safety Report 5320797-6 (Version None)
Quarter: 2007Q2

REPORT INFORMATION
  Report Type: 
  Country: None (occurrence: None)
  Receive Date: 20070509
  Receipt Date: 20070427
  Transmission Date: 20071010
  Serious: Yes (Hospitalization)
  Sender: FDA-Public Use
  Company Number: JP-GENENTECH-238780

PATIENT
  Sex: Male

DRUGS (9)
  1. RITUXAN [Suspect]
     Indication: NON-HODGKIN'S LYMPHOMA
     Dosage: 570 MG, SINGLE
     Route: 042
     Dates: start: 20061122
  2. RITUXAN [Suspect]
     Dosage: 560 MG, SINGLE
     Route: 042
     Dates: start: 20070115
  3. ADRIAMYCIN PFS [Concomitant]
     Indication: NON-HODGKIN'S LYMPHOMA
     Dates: start: 20061122
  4. ENDOXAN [Concomitant]
     Indication: NON-HODGKIN'S LYMPHOMA
     Dates: start: 20061122
  5. ONCOVIN [Concomitant]
     Indication: NON-HODGKIN'S LYMPHOMA
     Dates: start: 20061122
  6. PREDONINE [Concomitant]
     Indication: NON-HODGKIN'S LYMPHOMA
     Dates: start: 20061122
  7. PARAPLATIN [Concomitant]
     Indication: NON-HODGKIN'S LYMPHOMA
     Dates: start: 20070116, end: 20070215
  8. LASTET [Concomitant]
     Indication: NON-HODGKIN'S LYMPHOMA
     Dates: start: 20070115, end: 20070117
  9. IFOSFAMIDE [Concomitant]
     Indication: NON-HODGKIN'S LYMPHOMA
     Dates: start: 20070116, end: 20070215

REACTIONS (1)
  - PERITONITIS [None]
